FAERS Safety Report 12249151 (Version 1)
Quarter: 2016Q2

REPORT INFORMATION
  Report Type: Spontaneous
  Country: RU (occurrence: RU)
  Receive Date: 20160408
  Receipt Date: 20160408
  Transmission Date: 20160815
  Serious: Yes (Hospitalization, Other)
  Sender: FDA-Public Use
  Company Number: RU-MYLANLABS-2016M1014552

PATIENT

DRUGS (6)
  1. MEROPENEM. [Suspect]
     Active Substance: MEROPENEM
     Indication: PNEUMONIA
     Dosage: MAXIMUM DAILY DOSE
     Route: 042
     Dates: start: 201210
  2. CEFOPERAZONE W/SULBACTAM [Suspect]
     Active Substance: CEFOPERAZONE\SULBACTAM
     Indication: PNEUMONIA
     Dosage: MAXIMUM DAILY DOSE
     Route: 042
     Dates: start: 201210
  3. EGILOK [Concomitant]
     Active Substance: METOPROLOL TARTRATE
     Indication: HYPERTENSION
     Route: 065
  4. CEFTRIAXONE. [Suspect]
     Active Substance: CEFTRIAXONE
     Indication: INFECTION PROPHYLAXIS
     Dosage: 2G/DAY
     Route: 065
  5. METROGYL                           /00012501/ [Concomitant]
     Indication: INFECTION PROPHYLAXIS
     Route: 042
  6. PIPERACILLIN/TAZOBACTAM [Suspect]
     Active Substance: PIPERACILLIN SODIUM\TAZOBACTAM SODIUM
     Indication: PNEUMONIA
     Dosage: MAXIMUM DAILY DOSE
     Route: 042
     Dates: start: 201210

REACTIONS (9)
  - Klebsiella infection [None]
  - Acute respiratory distress syndrome [Recovered/Resolved]
  - Hyponatraemia [None]
  - Hypoproteinaemia [None]
  - Hypokalaemia [None]
  - Hypercalcaemia [None]
  - Supraventricular tachycardia [None]
  - Pseudomonas infection [None]
  - Sputum culture positive [None]

NARRATIVE: CASE EVENT DATE: 20121021
